FAERS Safety Report 21652084 (Version 1)
Quarter: 2022Q4

REPORT INFORMATION
  Report Type: Spontaneous
  Country: US (occurrence: None)
  Receive Date: 20221123
  Receipt Date: 20221123
  Transmission Date: 20230113
  Serious: No
  Sender: FDA-Public Use
  Company Number: None

PATIENT
  Age: 66 Year
  Sex: Male
  Weight: 102.51 kg

DRUGS (11)
  1. EVEROLIMUS [Suspect]
     Active Substance: EVEROLIMUS
     Indication: Carcinoid tumour pulmonary
     Dosage: FREQUENCY : DAILY;?
     Route: 048
  2. ASPIRIN [Concomitant]
     Active Substance: ASPIRIN
  3. BYSTOLIC [Concomitant]
     Active Substance: NEBIVOLOL HYDROCHLORIDE
  4. FUROSEMIDE [Concomitant]
     Active Substance: FUROSEMIDE
  5. NORCO [Concomitant]
     Active Substance: ACETAMINOPHEN\HYDROCODONE BITARTRATE
  6. IBUPROFEN [Concomitant]
     Active Substance: IBUPROFEN
  7. LORAZEPAM [Concomitant]
     Active Substance: LORAZEPAM
  8. METFORMIN [Concomitant]
     Active Substance: METFORMIN HYDROCHLORIDE
  9. TYLENOL [Concomitant]
     Active Substance: ACETAMINOPHEN
  10. VOLTAREN [Concomitant]
     Active Substance: DICLOFENAC SODIUM
  11. AMLODIPINE [Concomitant]
     Active Substance: AMLODIPINE BESYLATE

REACTIONS (1)
  - Disease progression [None]
